FAERS Safety Report 12465560 (Version 1)
Quarter: 2016Q2

REPORT INFORMATION
  Report Type: Spontaneous
  Country: US (occurrence: US)
  Receive Date: 20160614
  Receipt Date: 20160614
  Transmission Date: 20160815
  Serious: No
  Sender: FDA-Public Use
  Company Number: US-GLAXOSMITHKLINE-CHPA2015US007844

PATIENT
  Age: 2 Year
  Sex: Female

DRUGS (1)
  1. PREVACID [Suspect]
     Active Substance: LANSOPRAZOLE
     Indication: ACCIDENTAL EXPOSURE TO PRODUCT BY CHILD
     Dosage: UNK, SINGLE
     Route: 048
     Dates: start: 20150622, end: 20150622

REACTIONS (1)
  - Accidental exposure to product by child [Unknown]
